FAERS Safety Report 24020833 (Version 2)
Quarter: 2024Q3

REPORT INFORMATION
  Report Type: Spontaneous
  Country: FR (occurrence: FR)
  Receive Date: 20240627
  Receipt Date: 20240729
  Transmission Date: 20241016
  Serious: Yes (Hospitalization)
  Sender: FRESENIUS KABI
  Company Number: None

PATIENT
  Age: 54 Year
  Sex: Male
  Weight: 80 kg

DRUGS (2)
  1. OXALIPLATIN [Suspect]
     Active Substance: OXALIPLATIN
     Indication: Adenocarcinoma of colon
     Dosage: ROUTE OF ADMIN: INTRAVENOUS
     Route: 042
     Dates: start: 20240522, end: 20240606
  2. LEVOLEUCOVORIN CALCIUM [Concomitant]
     Active Substance: LEVOLEUCOVORIN CALCIUM
     Indication: Adenocarcinoma of colon
     Route: 042
     Dates: start: 20240522, end: 20240606

REACTIONS (2)
  - Anaphylactic shock [Recovered/Resolved]
  - Skin test positive [Recovered/Resolved]

NARRATIVE: CASE EVENT DATE: 20240606
